FAERS Safety Report 13400977 (Version 2)
Quarter: 2017Q4

REPORT INFORMATION
  Report Type: Spontaneous
  Country: BE (occurrence: BE)
  Receive Date: 20170404
  Receipt Date: 20171113
  Transmission Date: 20180320
  Serious: Yes (Life-Threatening, Hospitalization, Other)
  Sender: FDA-Public Use
  Company Number: BE-GLAXOSMITHKLINE-BE2017GSK046632

PATIENT
  Age: 70 Year
  Sex: Male
  Weight: 82 kg

DRUGS (2)
  1. AVANDIA [Suspect]
     Active Substance: ROSIGLITAZONE MALEATE
     Indication: DIABETES MELLITUS
     Dosage: UNK, QD
     Route: 048
     Dates: start: 2005, end: 2010
  2. ONGLYZA [Concomitant]
     Active Substance: SAXAGLIPTIN HYDROCHLORIDE
     Indication: TYPE 2 DIABETES MELLITUS
     Dosage: UNK
     Dates: start: 201010, end: 2017

REACTIONS (17)
  - Acute coronary syndrome [Unknown]
  - Thrombocytosis [Recovered/Resolved]
  - Hepatocellular injury [Unknown]
  - Inflammation [Unknown]
  - Neutrophilia [Unknown]
  - Aortic arteriosclerosis [Unknown]
  - Mediastinitis [Unknown]
  - Chest pain [Unknown]
  - Myocardial infarction [Unknown]
  - Hyperkalaemia [Unknown]
  - Coronary artery disease [Unknown]
  - Chest discomfort [Unknown]
  - Coronary artery bypass [Unknown]
  - Infection [Unknown]
  - Sternal injury [Unknown]
  - Normochromic normocytic anaemia [Unknown]
  - Tricuspid valve incompetence [Unknown]

NARRATIVE: CASE EVENT DATE: 20170308
